FAERS Safety Report 6223866-1 (Version None)
Quarter: 2009Q2

REPORT INFORMATION
  Report Type: 
  Country: None (occurrence: None)
  Receive Date: 20090611
  Receipt Date: 20090402
  Transmission Date: 20091009
  Serious: No
  Sender: FDA-Public Use
  Company Number: US-ABBOTT-09P-163-0560430-00

PATIENT
  Sex: Male
  Weight: 90.8 kg

DRUGS (2)
  1. HUMIRA [Suspect]
     Indication: COLITIS ULCERATIVE
     Route: 058
     Dates: start: 20081101
  2. SYNTHROID [Concomitant]
     Indication: THYROIDECTOMY
     Dates: start: 19740101

REACTIONS (11)
  - ACTIVITIES OF DAILY LIVING IMPAIRED [None]
  - COLITIS ULCERATIVE [None]
  - CONFUSIONAL STATE [None]
  - DRUG DELIVERY SYSTEM MALFUNCTION [None]
  - FATIGUE [None]
  - FEAR OF EATING [None]
  - INCORRECT DOSE ADMINISTERED [None]
  - MICTURITION URGENCY [None]
  - MUSCULAR WEAKNESS [None]
  - PERINEAL PAIN [None]
  - PROCTALGIA [None]
